FAERS Safety Report 8926292 (Version 2)
Quarter: 2013Q1

REPORT INFORMATION
  Report Type: Spontaneous
  Country: US (occurrence: US)
  Receive Date: 20121126
  Receipt Date: 20130301
  Transmission Date: 20140127
  Serious: No
  Sender: FDA-Public Use
  Company Number: PHEH2012US022915

PATIENT
  Age: 35 Year
  Sex: Female
  Weight: 110.2 kg

DRUGS (5)
  1. GILENYA [Suspect]
     Indication: RELAPSING-REMITTING MULTIPLE SCLEROSIS
     Dosage: 0.5 MG, DAILY
     Route: 048
     Dates: start: 20121106
  2. ZOLOFT [Concomitant]
     Indication: DEPRESSION
     Dosage: 100 MG, BID
     Route: 048
  3. BACLOFEN [Concomitant]
     Indication: MUSCLE SPASTICITY
     Route: 048
  4. VITAMINS NOS [Concomitant]
  5. AMPYRA [Concomitant]
     Indication: FATIGUE
     Dosage: 10 MG, BID
     Route: 048

REACTIONS (2)
  - Fall [Recovered/Resolved]
  - Gait disturbance [Recovered/Resolved]
